FAERS Safety Report 18821542 (Version 2)
Quarter: 2021Q1

REPORT INFORMATION
  Report Type: Spontaneous
  Country: US (occurrence: US)
  Receive Date: 20210202
  Receipt Date: 20210216
  Transmission Date: 20210419
  Serious: No
  Sender: FDA-Public Use
  Company Number: US-GW PHARMA-202101USGW00307

PATIENT

DRUGS (2)
  1. EPIDIOLEX [Suspect]
     Active Substance: CANNABIDIOL
     Indication: EPILEPTIC ENCEPHALOPATHY
     Dosage: 8 MG/KG/DAY, 100 MILLIGRAM, BID
     Dates: start: 20201209
  2. BUDESONIDE;SODIUM CHLORIDE [Suspect]
     Active Substance: BUDESONIDE\SODIUM CHLORIDE
     Indication: PRODUCT USED FOR UNKNOWN INDICATION
     Dosage: UNK
     Route: 065
     Dates: end: 202101

REACTIONS (7)
  - Rash [Recovered/Resolved]
  - Acne [Recovered/Resolved]
  - Pruritus [Recovered/Resolved]
  - Dermatitis contact [Recovered/Resolved]
  - Oral candidiasis [Recovered/Resolved]
  - Product use in unapproved indication [Unknown]
  - Tinea faciei [Recovered/Resolved]

NARRATIVE: CASE EVENT DATE: 20210105
